FAERS Safety Report 7537671-7 (Version None)
Quarter: 2011Q2

REPORT INFORMATION
  Report Type: 
  Country: None (occurrence: None)
  Receive Date: 20110609
  Receipt Date: 20070926
  Transmission Date: 20111010
  Serious: Yes (Death)
  Sender: FDA-Public Use
  Company Number: PHHO2007NZ15931

PATIENT
  Sex: Male

DRUGS (2)
  1. LITHIUM CARBONATE [Concomitant]
     Dosage: 500 MG, BID
  2. CLOZAPINE [Suspect]
     Indication: SCHIZOPHRENIA
     Dosage: 300 MG, UNK
     Route: 048
     Dates: start: 19980813

REACTIONS (1)
  - DEATH [None]
